FAERS Safety Report 8276246-1 (Version None)
Quarter: 2012Q2

REPORT INFORMATION
  Report Type: 
  Country: None (occurrence: None)
  Receive Date: 20120412
  Receipt Date: 20120402
  Transmission Date: 20120825
  Serious: Yes (Other)
  Sender: FDA-Public Use
  Company Number: PHEH2012US007181

PATIENT
  Sex: Male

DRUGS (15)
  1. BACLOFEN [Concomitant]
     Dosage: 10 MG, BID
  2. ZOCOR [Concomitant]
     Dosage: 40 MG, QD
  3. SANDOSTATIN LAR [Suspect]
     Indication: ACROMEGALY
     Dosage: 30 MG, EVERY 28 DAYS
  4. HUMALOG [Concomitant]
     Dosage: 40 U, DAILY
  5. MOBIC [Concomitant]
     Dosage: 15 MG, QD
  6. LANTUS [Concomitant]
     Dosage: 28 U, DAILY
  7. PROTONIX [Concomitant]
     Dosage: 40 MG, QD
  8. VITAMIN B-12 [Concomitant]
     Dosage: 1000 U, QMO
  9. CARDURA [Concomitant]
  10. CONTINUOUS POSITIVE AIRWAY PRESSURE [Concomitant]
  11. VICODIN [Concomitant]
     Dosage: 500 MG, BID
  12. LASIX [Concomitant]
     Dosage: 40 MG, QD
  13. LISINOPRIL [Concomitant]
     Dosage: 10 MG, QD
  14. CYMBALTA [Concomitant]
     Dosage: 60 MG, BID
  15. VESICARE [Concomitant]

REACTIONS (15)
  - TYPE 2 DIABETES MELLITUS [None]
  - HYPERLIPIDAEMIA [None]
  - HYPOKINESIA [None]
  - PROSTATE CANCER [None]
  - OSTEOARTHRITIS [None]
  - SPINAL COLUMN STENOSIS [None]
  - HYPERTENSION [None]
  - METAPLASIA [None]
  - OBESITY [None]
  - ARTHROPATHY [None]
  - NEUROPATHY PERIPHERAL [None]
  - CARPAL TUNNEL SYNDROME [None]
  - VITAMIN B12 DEFICIENCY [None]
  - SLEEP APNOEA SYNDROME [None]
  - PERIPHERAL VASCULAR DISORDER [None]
